FAERS Safety Report 8379336-8 (Version None)
Quarter: 2012Q2

REPORT INFORMATION
  Report Type: 
  Country: None (occurrence: None)
  Receive Date: 20120523
  Receipt Date: 20120517
  Transmission Date: 20120825
  Serious: Yes (Hospitalization)
  Sender: FDA-Public Use
  Company Number: PHHY2012CA043377

PATIENT
  Sex: Male

DRUGS (4)
  1. CLOZARIL [Suspect]
     Dosage: 100 MG, QD
     Route: 048
  2. ABILIFY [Concomitant]
     Dosage: 15 MG, QD
  3. CARBAMAZEPINE [Suspect]
     Dosage: 1800 MG, QD
  4. KEPPRA [Concomitant]
     Dosage: 2500 MG, QD

REACTIONS (1)
  - CONVULSION [None]
